FAERS Safety Report 4370865-0 (Version None)
Quarter: 2004Q2

REPORT INFORMATION
  Report Type: 
  Country: None (occurrence: None)
  Receive Date: 20040526
  Receipt Date: 20040514
  Transmission Date: 20050107
  Serious: Yes (Hospitalization)
  Sender: FDA-Public Use
  Company Number: HQWYE899414MAY04

PATIENT
  Age: 82 Year
  Sex: Male

DRUGS (6)
  1. CORDARONE [Suspect]
     Indication: ATRIAL FIBRILLATION
     Route: 048
     Dates: start: 20020215, end: 20040221
  2. HYDREA [Concomitant]
  3. COZAAR [Concomitant]
  4. ASPEGIC 1000 [Concomitant]
  5. PREVISCAN (FLUINDIONE) [Concomitant]
  6. FOLIC ACID [Concomitant]

REACTIONS (7)
  - ATRIOVENTRICULAR BLOCK [None]
  - BUNDLE BRANCH BLOCK LEFT [None]
  - DEPRESSION [None]
  - GOITRE [None]
  - HYPERTHYROIDISM [None]
  - IRRITABILITY [None]
  - TACHYARRHYTHMIA [None]
